FAERS Safety Report 8895639 (Version 3)
Quarter: 2012Q4

REPORT INFORMATION
  Report Type: Report from Study
  Country: CZ (occurrence: CZ)
  Receive Date: 20121108
  Receipt Date: 20121224
  Transmission Date: 20130627
  Serious: Yes (Hospitalization, Other)
  Sender: FDA-Public Use
  Company Number: CZ-ROCHE-1141855

PATIENT
  Age: 66 Year
  Sex: Male

DRUGS (10)
  1. BEVACIZUMAB [Suspect]
     Indication: COLORECTAL CANCER
     Route: 042
     Dates: start: 20111115, end: 20120322
  2. FOLINIC ACID [Concomitant]
     Indication: COLORECTAL CANCER
  3. FLUOROURACIL [Concomitant]
     Indication: COLORECTAL CANCER
  4. OXALIPLATIN [Concomitant]
     Indication: COLORECTAL CANCER
  5. LOKREN [Concomitant]
     Dosage: 1-0-0
     Route: 065
  6. LOZAP H [Concomitant]
     Dosage: 1-0-0
     Route: 065
  7. HELICID [Concomitant]
     Dosage: 1-0-1
     Route: 065
  8. ZOFRAN [Concomitant]
     Route: 065
  9. CERUCAL [Concomitant]
  10. TORECAN [Concomitant]

REACTIONS (2)
  - Renal failure acute [Not Recovered/Not Resolved]
  - Nephrotic syndrome [Not Recovered/Not Resolved]
